FAERS Safety Report 24656399 (Version 5)
Quarter: 2025Q3

REPORT INFORMATION
  Report Type: Report from Study
  Country: US (occurrence: US)
  Receive Date: 20241124
  Receipt Date: 20250922
  Transmission Date: 20251020
  Serious: No
  Sender: BRISTOL-MYERS SQUIBB COMPANY
  Company Number: US-BRISTOL-MYERS SQUIBB COMPANY-2024-181231

PATIENT
  Age: 58 Year
  Sex: Female

DRUGS (5)
  1. COBENFY [Suspect]
     Active Substance: TROSPIUM CHLORIDE\XANOMELINE
     Indication: Product used for unknown indication
  2. COBENFY [Suspect]
     Active Substance: TROSPIUM CHLORIDE\XANOMELINE
     Dates: start: 202411
  3. COBENFY [Suspect]
     Active Substance: TROSPIUM CHLORIDE\XANOMELINE
     Dosage: TAKES HER MORNING DOSE WHEN SHE FIRST WAKES UP AND HER EVENING DOSE AT 9-10PM AT LEAST 2 HOURS AFTER EATING
  4. COBENFY [Suspect]
     Active Substance: TROSPIUM CHLORIDE\XANOMELINE
  5. COBENFY [Suspect]
     Active Substance: TROSPIUM CHLORIDE\XANOMELINE

REACTIONS (9)
  - Vomiting [Unknown]
  - Hypertension [Recovered/Resolved]
  - Nausea [Unknown]
  - Depression [Recovering/Resolving]
  - Drug ineffective [Unknown]
  - Gastrointestinal disorder [Recovering/Resolving]
  - Cardiac disorder [Recovering/Resolving]
  - Hepatic enzyme increased [Recovering/Resolving]
  - COVID-19 [Unknown]

NARRATIVE: CASE EVENT DATE: 20241114
